FAERS Safety Report 23926744 (Version 1)
Quarter: 2024Q2

REPORT INFORMATION
  Report Type: Spontaneous
  Country: US (occurrence: None)
  Receive Date: 20240531
  Receipt Date: 20240531
  Transmission Date: 20240716
  Serious: Yes (Disabling, Other)
  Sender: FDA-Public Use
  Company Number: None

PATIENT
  Age: 42 Year
  Sex: Female
  Weight: 80.1 kg

DRUGS (1)
  1. OMNIPAQUE [Suspect]
     Active Substance: IOHEXOL
     Indication: Hysterosalpingogram

REACTIONS (6)
  - Abdominal pain upper [None]
  - Abdominal distension [None]
  - Dyspnoea [None]
  - Drug intolerance [None]
  - White blood cell count increased [None]
  - Contrast media reaction [None]

NARRATIVE: CASE EVENT DATE: 20240529
